FAERS Safety Report 9678087 (Version 1)
Quarter: 2013Q4

REPORT INFORMATION
  Report Type: Spontaneous
  Country: US (occurrence: US)
  Receive Date: 20131108
  Receipt Date: 20131108
  Transmission Date: 20140711
  Serious: No
  Sender: FDA-Public Use
  Company Number: US-ASTRAZENECA-2013SE78190

PATIENT
  Age: 84 Year
  Sex: Female
  Weight: 74.8 kg

DRUGS (4)
  1. CRESTOR [Suspect]
     Route: 048
     Dates: start: 20130123
  2. CRESTOR [Suspect]
     Dosage: SPLITTING 10MG IN HALF AND 20MG IN QUARTERS
     Route: 048
  3. HCTZ [Suspect]
     Dosage: 12.5 DAILY
     Route: 065
  4. ALPROLAZAM [Concomitant]

REACTIONS (2)
  - Blood calcium increased [Unknown]
  - Intentional drug misuse [Unknown]
